FAERS Safety Report 7958501-5 (Version None)
Quarter: 2011Q4

REPORT INFORMATION
  Report Type: 
  Country: None (occurrence: None)
  Receive Date: 20111206
  Receipt Date: 20111129
  Transmission Date: 20120403
  Serious: Yes (Hospitalization)
  Sender: FDA-Public Use
  Company Number: US-BIOGENIDEC-2011BI032087

PATIENT
  Age: 41 Year
  Sex: Female

DRUGS (1)
  1. TYSABRI [Suspect]
     Indication: MULTIPLE SCLEROSIS
     Route: 042
     Dates: start: 20101004

REACTIONS (18)
  - HALLUCINATION, VISUAL [None]
  - PELVIC INFECTION [None]
  - VEIN DISORDER [None]
  - PYREXIA [None]
  - MOBILITY DECREASED [None]
  - UTERINE LEIOMYOMA [None]
  - TACHYPHRENIA [None]
  - HYPOAESTHESIA [None]
  - MENSTRUAL DISORDER [None]
  - PROCEDURAL PAIN [None]
  - FOOD ALLERGY [None]
  - PARAESTHESIA [None]
  - MULTIPLE SCLEROSIS RELAPSE [None]
  - POST PROCEDURAL HAEMORRHAGE [None]
  - DYSURIA [None]
  - FATIGUE [None]
  - DYSSTASIA [None]
  - ASTHENIA [None]
